FAERS Safety Report 8217336-9 (Version None)
Quarter: 2012Q1

REPORT INFORMATION
  Report Type: 
  Country: None (occurrence: None)
  Receive Date: 20120313
  Receipt Date: 20120306
  Transmission Date: 20120608
  Serious: Yes (Death, Life-Threatening, Hospitalization)
  Sender: FDA-Public Use
  Company Number: 2001005325-FJ

PATIENT
  Age: 1 Year
  Sex: Female
  Weight: 8.3 kg

DRUGS (11)
  1. STEROID FORMULATION UNKNOWN [Suspect]
     Dates: start: 19950412, end: 19951226
  2. URSEODEOXYCHOLIC ACID [Concomitant]
  3. ACYCLOVIR [Concomitant]
  4. FUROSEMIDE [Concomitant]
  5. TACROLIMUS [Suspect]
     Indication: LIVER TRANSPLANT
     Dosage: 0.5 MG, BID, ORAL, ORAL, ORAL, ORAL
     Route: 048
     Dates: start: 19950411, end: 19950411
  6. TACROLIMUS [Suspect]
     Indication: LIVER TRANSPLANT
     Dosage: 0.5 MG, BID, ORAL, ORAL, ORAL, ORAL
     Route: 048
     Dates: start: 19950413, end: 19951015
  7. TACROLIMUS [Suspect]
     Indication: LIVER TRANSPLANT
     Dosage: 0.5 MG, BID, ORAL, ORAL, ORAL, ORAL
     Route: 048
     Dates: start: 19951214, end: 19951225
  8. TACROLIMUS [Suspect]
     Indication: LIVER TRANSPLANT
     Dosage: 0.5 MG, BID, ORAL, ORAL, ORAL, ORAL
     Route: 048
     Dates: start: 19951016, end: 19951213
  9. ETHAMBUTOL HYDROCHLORIDE (ETHAMBUTOL DIHYDROCHLORIDE) [Concomitant]
  10. MICONAZOLE [Concomitant]
  11. FAMOTIDINE [Concomitant]

REACTIONS (4)
  - CYTOMEGALOVIRUS INFECTION [None]
  - LOBAR PNEUMONIA [None]
  - LIVER TRANSPLANT REJECTION [None]
  - SEPSIS [None]
